APPROVED DRUG PRODUCT: CARBACHOL
Active Ingredient: CARBACHOL
Strength: 0.01%
Dosage Form/Route: SOLUTION;INTRAOCULAR
Application: A070292 | Product #001
Applicant: PHARMAFAIR INC
Approved: May 21, 1986 | RLD: No | RS: No | Type: DISCN